FAERS Safety Report 6196330-6 (Version None)
Quarter: 2009Q2

REPORT INFORMATION
  Report Type: 
  Country: None (occurrence: None)
  Receive Date: 20090520
  Receipt Date: 20080513
  Transmission Date: 20091009
  Serious: Yes (Hospitalization, Other)
  Sender: FDA-Public Use
  Company Number: US-ASTRAZENECA-2008UW04648

PATIENT
  Age: 15569 Day
  Sex: Male
  Weight: 108.9 kg

DRUGS (30)
  1. SEROQUEL [Suspect]
     Indication: ANXIETY
     Dosage: 200 MG TO 400 MG
     Route: 048
     Dates: start: 20040514, end: 20070601
  2. SEROQUEL [Suspect]
     Indication: DEPRESSION
     Dosage: 200 MG TO 400 MG
     Route: 048
     Dates: start: 20040514, end: 20070601
  3. SEROQUEL [Suspect]
     Indication: BIPOLAR DISORDER
     Dosage: 200 MG TO 400 MG
     Route: 048
     Dates: start: 20040514, end: 20070601
  4. SEROQUEL [Suspect]
     Dosage: 100MG-400MG
     Route: 048
     Dates: start: 20040518
  5. SEROQUEL [Suspect]
     Dosage: 100MG-400MG
     Route: 048
     Dates: start: 20040518
  6. SEROQUEL [Suspect]
     Dosage: 100MG-400MG
     Route: 048
     Dates: start: 20040518
  7. LASIX [Concomitant]
     Dosage: 20-40 MG
     Route: 048
  8. GLIPIZIDE [Concomitant]
     Dosage: 10-20 MG DAILY
     Route: 048
  9. PRILOSEC [Concomitant]
     Route: 048
  10. GLUCOPHAGE [Concomitant]
     Route: 048
  11. KLONOPIN [Concomitant]
     Indication: PANIC ATTACK
     Dosage: 1-3 MG
     Route: 048
  12. KLONOPIN [Concomitant]
     Indication: ANXIETY
     Dosage: 1-3 MG
     Route: 048
  13. IMDUR [Concomitant]
     Route: 048
  14. TOPROL-XL [Concomitant]
     Route: 048
  15. PAXIL [Concomitant]
     Dosage: 10-40 MG DAILY
     Route: 048
  16. VALPROIC ACID [Concomitant]
     Route: 048
  17. RISPERDAL [Concomitant]
     Route: 048
  18. DEPAKOTE [Concomitant]
     Dosage: 500-1000 MG
     Route: 048
  19. TRAZODONE HYDROCHLORIDE [Concomitant]
     Route: 048
  20. FOLIC ACID [Concomitant]
     Dosage: 1-3 MG
     Route: 048
  21. ENALAPRIL [Concomitant]
     Route: 048
  22. ALDACTONE [Concomitant]
     Route: 048
  23. HUMALOG [Concomitant]
     Dosage: 12-36 U
     Route: 065
  24. IMIPRAMINE HYDROCHLORIDE [Concomitant]
     Dosage: 25-75 MG
     Route: 048
  25. LANTUS [Concomitant]
     Dosage: 20-40 U
     Route: 065
  26. ACTOS [Concomitant]
     Route: 048
  27. BACLOFEN [Concomitant]
     Route: 048
  28. AMARYL [Concomitant]
     Route: 065
  29. ATENOLOL [Concomitant]
     Route: 048
  30. LISINOPRIL [Concomitant]
     Route: 048

REACTIONS (9)
  - AMBLYOPIA [None]
  - ANAEMIA [None]
  - BACK PAIN [None]
  - CHEST PAIN [None]
  - DIABETES MELLITUS [None]
  - DIARRHOEA [None]
  - PAIN IN EXTREMITY [None]
  - SINUS TACHYCARDIA [None]
  - THROMBOCYTOPENIA [None]
